FAERS Safety Report 13988538 (Version 4)
Quarter: 2017Q4

REPORT INFORMATION
  Report Type: Spontaneous
  Country: US (occurrence: US)
  Receive Date: 20170919
  Receipt Date: 20171120
  Transmission Date: 20180321
  Serious: No
  Sender: FDA-Public Use
  Company Number: US-TAIHO ONCOLOGY INC-EU-2017-01235

PATIENT
  Sex: Male
  Weight: 56.61 kg

DRUGS (1)
  1. LONSURF [Suspect]
     Active Substance: TIPIRACIL HYDROCHLORIDE\TRIFLURIDINE
     Indication: COLON CANCER
     Dosage: CYCLE 3 STARTED ON 21/OCT/2017
     Route: 048
     Dates: start: 20170826, end: 2017

REACTIONS (8)
  - Chest pain [Unknown]
  - Nausea [Unknown]
  - Abdominal pain upper [Unknown]
  - Disease progression [Unknown]
  - Fatigue [Unknown]
  - Blood iron increased [Unknown]
  - Heart rate increased [Unknown]
  - Constipation [Unknown]

NARRATIVE: CASE EVENT DATE: 2017
